FAERS Safety Report 9166296 (Version 1)
Quarter: 2013Q1

REPORT INFORMATION
  Report Type: Spontaneous
  Country: US (occurrence: US)
  Receive Date: 20130315
  Receipt Date: 20130315
  Transmission Date: 20140127
  Serious: No
  Sender: FDA-Public Use
  Company Number: US-BAYER-2013-032559

PATIENT
  Age: 50 Year
  Sex: Male

DRUGS (3)
  1. BETASERON [Suspect]
     Indication: RELAPSING-REMITTING MULTIPLE SCLEROSIS
     Dosage: UNK
     Dates: start: 2007, end: 2010
  2. BETASERON [Suspect]
     Indication: RELAPSING-REMITTING MULTIPLE SCLEROSIS
     Dosage: 0.25 MG, UNK
     Route: 058
     Dates: start: 2010
  3. IBUPROFEN [IBUPROFEN] [Concomitant]
     Indication: PREMEDICATION

REACTIONS (4)
  - Influenza like illness [None]
  - Headache [None]
  - Abdominal pain upper [None]
  - Depression [None]
